FAERS Safety Report 9643897 (Version 1)
Quarter: 2013Q4

REPORT INFORMATION
  Report Type: Spontaneous
  Country: US (occurrence: US)
  Receive Date: 20131024
  Receipt Date: 20131024
  Transmission Date: 20140711
  Serious: No
  Sender: FDA-Public Use
  Company Number: US-009507513-1310USA004864

PATIENT
  Age: 39 Year
  Sex: Female

DRUGS (7)
  1. PEGINTRON [Suspect]
     Indication: HEPATITIS C
     Dosage: 150 MICROGRAM, QW
     Route: 058
     Dates: start: 20130919
  2. RIBASPHERE [Suspect]
  3. INCIVEK [Suspect]
  4. REQUIP [Concomitant]
  5. CLONIDINE [Concomitant]
  6. DOXEPIN HYDROCHLORIDE [Concomitant]
  7. XANAX [Concomitant]

REACTIONS (2)
  - Vomiting [Recovered/Resolved]
  - Fatigue [Not Recovered/Not Resolved]
